FAERS Safety Report 9255687 (Version 1)
Quarter: 2013Q2

REPORT INFORMATION
  Report Type: Spontaneous
  Country: US (occurrence: US)
  Receive Date: 20130425
  Receipt Date: 20130425
  Transmission Date: 20140414
  Serious: No
  Sender: FDA-Public Use
  Company Number: US-ASTRAZENECA-2013SE25374

PATIENT
  Age: 76 Year
  Sex: Female
  Weight: 60.8 kg

DRUGS (3)
  1. NEXIUM [Suspect]
     Indication: GASTROOESOPHAGEAL REFLUX DISEASE
     Route: 048
     Dates: start: 2003
  2. WATER PILL [Concomitant]
  3. BYSTOLIC [Concomitant]
     Indication: BLOOD PRESSURE ABNORMAL

REACTIONS (3)
  - Bone density decreased [Not Recovered/Not Resolved]
  - Hypertension [Not Recovered/Not Resolved]
  - Body height decreased [Not Recovered/Not Resolved]
